FAERS Safety Report 9812208 (Version 1)
Quarter: 2014Q1

REPORT INFORMATION
  Report Type: Spontaneous
  Country: US (occurrence: US)
  Receive Date: 20140112
  Receipt Date: 20140112
  Transmission Date: 20141002
  Serious: Yes (Hospitalization)
  Sender: FDA-Public Use
  Company Number: US-AMGEN-USASP2014001544

PATIENT
  Sex: 0

DRUGS (1)
  1. PROCRIT [Suspect]
     Indication: ANAEMIA
     Dosage: 60000 UNIT, 2 TIMES/WK
     Route: 065

REACTIONS (1)
  - Hospitalisation [Unknown]
